FAERS Safety Report 16929009 (Version 4)
Quarter: 2022Q2

REPORT INFORMATION
  Report Type: Report from Study
  Country: JP (occurrence: JP)
  Receive Date: 20191017
  Receipt Date: 20220624
  Transmission Date: 20220721
  Serious: Yes (Other)
  Sender: FDA-Public Use
  Company Number: JP-VIIV HEALTHCARE ULC-JP2019JPN187001

PATIENT

DRUGS (4)
  1. ABACAVIR SULFATE\DOLUTEGRAVIR SODIUM\LAMIVUDINE [Suspect]
     Active Substance: ABACAVIR SULFATE\DOLUTEGRAVIR SODIUM\LAMIVUDINE
     Indication: HIV infection
     Dosage: 1 DF, 1D
     Route: 048
     Dates: start: 20181001
  2. FEBUXOSTAT [Concomitant]
     Active Substance: FEBUXOSTAT
     Indication: Hyperuricaemia
     Dosage: UNK
     Dates: start: 20191126
  3. BILASTINE [Concomitant]
     Active Substance: BILASTINE
     Indication: Seasonal allergy
     Dosage: UNK
     Dates: start: 20200128, end: 20200327
  4. BILASTINE [Concomitant]
     Active Substance: BILASTINE
     Dosage: UNK
     Dates: start: 20210125, end: 20210621

REACTIONS (6)
  - Enterocolitis [Recovering/Resolving]
  - Nasopharyngitis [Recovering/Resolving]
  - Asthma [Recovering/Resolving]
  - Otitis media [Recovering/Resolving]
  - Ex-tobacco user [Recovered/Resolved]
  - Fasciitis [Recovering/Resolving]

NARRATIVE: CASE EVENT DATE: 20181001
